FAERS Safety Report 5010134-9 (Version None)
Quarter: 2006Q2

REPORT INFORMATION
  Report Type: 
  Country: None (occurrence: None)
  Receive Date: 20060404
  Receipt Date: 20051208
  Transmission Date: 20061013
  Serious: No
  Sender: FDA-Public Use
  Company Number: US200512001563

PATIENT
  Age: 60 Year
  Sex: Female

DRUGS (7)
  1. CYMBALTA [Suspect]
     Indication: FIBROMYALGIA
     Dosage: SEE IMAGE
     Dates: start: 20051201, end: 20051201
  2. CYMBALTA [Suspect]
     Indication: FIBROMYALGIA
     Dosage: SEE IMAGE
     Dates: start: 20051206
  3. AMBIEN [Concomitant]
  4. TRICOR [Concomitant]
  5. CRESTOR [Concomitant]
  6. NEXIUM [Concomitant]
  7. ATACAND /SWE/(CANDESARTAN CILEXETIL) [Concomitant]

REACTIONS (2)
  - CHILLS [None]
  - HEADACHE [None]
